FAERS Safety Report 5865853-9 (Version None)
Quarter: 2008Q3

REPORT INFORMATION
  Report Type: 
  Country: None (occurrence: None)
  Receive Date: 20080829
  Receipt Date: 20080818
  Transmission Date: 20090109
  Serious: Yes (Hospitalization)
  Sender: FDA-Public Use
  Company Number: US-ELI_LILLY_AND_COMPANY-US200710002877

PATIENT
  Age: 90 Year
  Sex: Female

DRUGS (5)
  1. FORTEO [Suspect]
     Indication: OSTEOPOROSIS
     Dosage: 20 UG, DAILY (1/D)
     Dates: start: 20070918, end: 20071012
  2. LISINOPRIL [Concomitant]
     Indication: BLOOD PRESSURE
  3. CARDIZEM LA [Concomitant]
  4. ASPIRIN [Concomitant]
  5. CLONIDINE [Concomitant]

REACTIONS (3)
  - ANXIETY [None]
  - GASTRIC DISORDER [None]
  - MALIGNANT HYPERTENSION [None]
